FAERS Safety Report 10640615 (Version 1)
Quarter: 2014Q4

REPORT INFORMATION
  Report Type: Report from Study
  Country: TN (occurrence: TN)
  Receive Date: 20141209
  Receipt Date: 20141209
  Transmission Date: 20150529
  Serious: Yes (Death)
  Sender: FDA-Public Use
  Company Number: TN-SA-2014SA167961

PATIENT
  Age: 61 Year
  Sex: Male

DRUGS (9)
  1. ATOR [Concomitant]
     Active Substance: ATORVASTATIN CALCIUM
  2. CAPTOPRIL. [Concomitant]
     Active Substance: CAPTOPRIL
     Route: 048
     Dates: end: 20141201
  3. ACTRAPID [Concomitant]
     Active Substance: INSULIN HUMAN
  4. PLAVIX [Suspect]
     Active Substance: CLOPIDOGREL BISULFATE
     Indication: MYOCARDIAL INFARCTION
     Route: 048
     Dates: start: 20140224, end: 20141201
  5. ASPEGIC [Concomitant]
     Active Substance: ASPIRIN DL-LYSINE
     Route: 048
     Dates: end: 20141201
  6. CORVASAL [Concomitant]
     Active Substance: LINSIDOMINE
     Route: 048
     Dates: end: 20141201
  7. CINCOR [Concomitant]
     Route: 048
     Dates: end: 20141201
  8. FAMODINE [Concomitant]
  9. ISOPHANE INSULIN [Concomitant]
     Active Substance: INSULIN NOS

REACTIONS (1)
  - Acute pulmonary oedema [Fatal]

NARRATIVE: CASE EVENT DATE: 20141125
